FAERS Safety Report 5780633-0 (Version None)
Quarter: 2008Q2

REPORT INFORMATION
  Report Type: 
  Country: None (occurrence: None)
  Receive Date: 20080620
  Receipt Date: 20080612
  Transmission Date: 20081010
  Serious: Yes (Other)
  Sender: FDA-Public Use
  Company Number: GB-ABBOTT-08P-167-0457033-00

PATIENT
  Age: 40 Year
  Sex: Female
  Weight: 72 kg

DRUGS (3)
  1. REDUCTIL [Suspect]
     Indication: WEIGHT CONTROL
     Route: 048
     Dates: start: 20071001, end: 20071201
  2. REDUCTIL [Suspect]
     Route: 048
     Dates: start: 20080301, end: 20080501
  3. DEPO [Concomitant]
     Indication: CONTRACEPTION
     Route: 050

REACTIONS (1)
  - MENORRHAGIA [None]
